FAERS Safety Report 9492018 (Version 7)
Quarter: 2013Q4

REPORT INFORMATION
  Report Type: Spontaneous
  Country: US (occurrence: US)
  Receive Date: 20130830
  Receipt Date: 20131008
  Transmission Date: 20140711
  Serious: Yes (Hospitalization, Other)
  Sender: FDA-Public Use
  Company Number: US-JNJFOC-20130605251

PATIENT
  Age: 68 Year
  Sex: Female
  Weight: 76.2 kg

DRUGS (13)
  1. XARELTO [Suspect]
     Indication: CEREBROVASCULAR ACCIDENT PROPHYLAXIS
     Route: 048
     Dates: end: 20130606
  2. XARELTO [Suspect]
     Indication: ATRIAL FIBRILLATION
     Route: 048
     Dates: end: 20130606
  3. BABY ASPIRIN [Suspect]
     Indication: CARDIAC DISORDER
     Dosage: 25MG/ONE TABLET??IN THE MORNING AND ONE TABLET??IN THE EVENING
     Route: 048
     Dates: start: 2012
  4. LOPRESSOR [Concomitant]
     Indication: HEART RATE DECREASED
     Dosage: 25MG/ONE TABLET??IN THE MORNING AND ONE TABLET??IN THE EVENING
     Route: 048
     Dates: start: 201305
  5. ALLOPURINOL [Concomitant]
     Indication: GOUT
     Dosage: 25MG/ONE TABLET??IN THE MORNING AND ONE TABLET??IN THE EVENING
     Route: 048
     Dates: start: 2011
  6. ALLOPURINOL [Concomitant]
     Indication: RENAL DISORDER
     Dosage: 25MG/ONE TABLET??IN THE MORNING AND ONE TABLET??IN THE EVENING
     Route: 048
     Dates: start: 2011
  7. BACID [Concomitant]
     Indication: GASTRIC DISORDER
     Dosage: 25MG/ONE TABLET??IN THE MORNING AND ONE TABLET??IN THE EVENING
     Route: 048
  8. LOSARTAN [Concomitant]
     Indication: BLOOD PRESSURE
     Dosage: 25MG/ONE TABLET??IN THE MORNING AND ONE TABLET??IN THE EVENING
     Route: 048
     Dates: start: 2011
  9. ZOCOR [Concomitant]
     Indication: BLOOD CHOLESTEROL
     Dosage: 25MG/ONE TABLET??IN THE MORNING AND ONE TABLET??IN THE EVENING
     Route: 048
  10. LASIX [Concomitant]
     Indication: DIURETIC THERAPY
     Dosage: 20MG/ONE TO TWO??TABLETS DAILY
     Route: 048
  11. LASIX [Concomitant]
     Indication: CARDIAC FAILURE CONGESTIVE
     Dosage: 20MG/ONE TO TWO??TABLETS DAILY
     Route: 048
  12. METOPROLOL [Concomitant]
     Indication: HEART RATE
     Route: 065
  13. VITAMIN C [Concomitant]
     Route: 065

REACTIONS (9)
  - Diarrhoea haemorrhagic [Not Recovered/Not Resolved]
  - Rectal haemorrhage [Recovering/Resolving]
  - Haemorrhoidal haemorrhage [Recovering/Resolving]
  - Activities of daily living impaired [Recovering/Resolving]
  - Diarrhoea [Not Recovered/Not Resolved]
  - Contusion [Recovering/Resolving]
  - Weight decreased [Not Recovered/Not Resolved]
  - Decreased appetite [Not Recovered/Not Resolved]
  - Asthenia [Recovering/Resolving]
